FAERS Safety Report 18213938 (Version 1)
Quarter: 2020Q3

REPORT INFORMATION
  Report Type: Spontaneous
  Country: US (occurrence: US)
  Receive Date: 20200831
  Receipt Date: 20200831
  Transmission Date: 20201103
  Serious: Yes (Other)
  Sender: FDA-Public Use
  Company Number: US-PURDUE-USA-2020-0163541

PATIENT
  Sex: Male

DRUGS (4)
  1. OXYCONTIN [Suspect]
     Active Substance: OXYCODONE HYDROCHLORIDE
     Indication: PRODUCT USED FOR UNKNOWN INDICATION
     Dosage: 3X40 MG, UNK
     Route: 048
  2. FENTANYL. [Suspect]
     Active Substance: FENTANYL
     Indication: PRODUCT USED FOR UNKNOWN INDICATION
     Dosage: UNK
     Route: 048
  3. PERCOCET                           /00446701/ [Suspect]
     Active Substance: ACETAMINOPHEN\OXYCODONE HYDROCHLORIDE\OXYCODONE TEREPHTHALATE
     Indication: PRODUCT USED FOR UNKNOWN INDICATION
     Dosage: 250 UNK, UNK
     Route: 048
  4. OXYCODONE/ ACETAMINOPHEN TABLETS [Suspect]
     Active Substance: ACETAMINOPHEN\OXYCODONE HYDROCHLORIDE
     Indication: PRODUCT USED FOR UNKNOWN INDICATION
     Dosage: UNK
     Route: 048

REACTIONS (16)
  - Withdrawal syndrome [Unknown]
  - Somatic symptom disorder [Unknown]
  - Substance abuse [Unknown]
  - Pain [Unknown]
  - Anxiety [None]
  - Restless legs syndrome [Unknown]
  - Depression [Unknown]
  - Memory impairment [Unknown]
  - Illness anxiety disorder [Unknown]
  - Overdose [Unknown]
  - Muscle spasms [Unknown]
  - Anxiety disorder [Unknown]
  - Dependence [Unknown]
  - Mental impairment [Unknown]
  - Suicidal ideation [Unknown]
  - Incorrect dose administered [Unknown]
